FAERS Safety Report 6759896 (Version 20)
Quarter: 2013Q4

REPORT INFORMATION
  Report Type: Spontaneous
  Country: US (occurrence: US)
  Receive Date: 20080916
  Receipt Date: 20131210
  Transmission Date: 20140711
  Serious: Yes (Hospitalization, Other)
  Sender: FDA-Public Use
  Company Number: PHEH2008US08016

PATIENT
  Age: 57 Year
  Sex: Male

DRUGS (16)
  1. ZOMETA [Suspect]
     Indication: PLASMA CELL MYELOMA
     Dosage: 4 MG, QMO
     Dates: start: 20011228
  2. AREDIA [Suspect]
     Dosage: 90 MG,
     Dates: start: 20000711
  3. IBUPROFEN [Concomitant]
  4. CEPHALEXIN [Concomitant]
     Dates: start: 200506
  5. CLINDAMYCIN [Concomitant]
     Dates: start: 200412
  6. AMARYL [Concomitant]
     Dosage: 4 MG,
  7. ZANTAC [Concomitant]
  8. PENICILLIN VK [Concomitant]
     Dosage: 250 MG,
     Dates: start: 200412
  9. METHYLPREDNISOLONE [Concomitant]
     Dates: start: 2004
  10. VELCADE [Concomitant]
  11. MELPHALAN [Concomitant]
     Dosage: 2 MG,
     Dates: start: 200603
  12. LASIX [Concomitant]
     Dosage: 20 MG, PRN
     Dates: start: 200603
  13. CHEMOTHERAPEUTICS NOS [Concomitant]
     Dates: start: 200604
  14. GLUCOTROL [Concomitant]
  15. ALTACE [Concomitant]
  16. STEROIDS NOS [Concomitant]

REACTIONS (107)
  - Type 2 diabetes mellitus [Unknown]
  - Osteonecrosis of jaw [Unknown]
  - Bone disorder [Unknown]
  - Mouth haemorrhage [Unknown]
  - Pain in jaw [Unknown]
  - Impaired healing [Unknown]
  - Biopsy gingival [Unknown]
  - Osteomyelitis [Unknown]
  - Cardiac murmur [Unknown]
  - Arthritis [Unknown]
  - Hypoaesthesia [Unknown]
  - Plasma cell myeloma [Unknown]
  - Haemoglobin abnormal [Unknown]
  - Oedema [Unknown]
  - Fatigue [Unknown]
  - Light chain analysis increased [Unknown]
  - Plasmacytosis [Unknown]
  - Blood glucose increased [Unknown]
  - Scoliosis [Unknown]
  - Peripheral vascular disorder [Unknown]
  - Bone density decreased [Unknown]
  - Fracture [Unknown]
  - Nausea [Unknown]
  - Vomiting [Unknown]
  - Anaemia [Unknown]
  - Insomnia [Unknown]
  - Anxiety [Unknown]
  - Hypertension [Unknown]
  - Intervertebral disc degeneration [Unknown]
  - Influenza like illness [Unknown]
  - Depression [Unknown]
  - Metatarsalgia [Unknown]
  - Pain in extremity [Unknown]
  - Epistaxis [Unknown]
  - Hypercalcaemia [Unknown]
  - Back pain [Unknown]
  - Arthralgia [Unknown]
  - Neck pain [Unknown]
  - Tinnitus [Unknown]
  - Hypoacusis [Unknown]
  - Sinusitis [Unknown]
  - Rib fracture [Unknown]
  - Cauda equina syndrome [Unknown]
  - Tendonitis [Unknown]
  - Osteonecrosis [Unknown]
  - Plasmacytoma [Unknown]
  - Hypotension [Unknown]
  - Infection [Unknown]
  - Renal failure [Unknown]
  - Deep vein thrombosis [Unknown]
  - Gastrooesophageal reflux disease [Unknown]
  - Haemoptysis [Unknown]
  - Oedema peripheral [Unknown]
  - Hyperlipidaemia [Unknown]
  - Dyspnoea [Unknown]
  - Intervertebral disc protrusion [Unknown]
  - Metastases to bone [Unknown]
  - Metastases to chest wall [Unknown]
  - Pleural effusion [Unknown]
  - Chest wall mass [Unknown]
  - Fall [Unknown]
  - Osteoporosis [Unknown]
  - Spondylolisthesis [Unknown]
  - Exostosis [Unknown]
  - Bone fragmentation [Unknown]
  - Dizziness [Unknown]
  - Acute coronary syndrome [Unknown]
  - Dilatation atrial [Unknown]
  - Mitral valve incompetence [Unknown]
  - Aortic valve sclerosis [Unknown]
  - Pulmonary valve incompetence [Unknown]
  - Large intestine polyp [Unknown]
  - Gastrointestinal haemorrhage [Unknown]
  - Rectal haemorrhage [Unknown]
  - Syncope [Unknown]
  - Loss of consciousness [Unknown]
  - Renal cyst [Unknown]
  - Mesenteric artery stenosis [Unknown]
  - Phlebolith [Unknown]
  - Abdominal pain [Unknown]
  - Inguinal hernia [Unknown]
  - Vascular calcification [Unknown]
  - Soft tissue mass [Unknown]
  - Gynaecomastia [Unknown]
  - Pneumothorax [Unknown]
  - Vision blurred [Unknown]
  - Intervertebral disc space narrowing [Unknown]
  - Vertebral foraminal stenosis [Unknown]
  - Osteosclerosis [Unknown]
  - Tooth loss [Unknown]
  - Metastases to pleura [Unknown]
  - Respiratory alkalosis [Unknown]
  - Osteolysis [Unknown]
  - Arteriosclerosis coronary artery [Unknown]
  - Post-traumatic stress disorder [Unknown]
  - Haemorrhoids [Unknown]
  - Erectile dysfunction [Unknown]
  - Seasonal allergy [Unknown]
  - Bone pain [Unknown]
  - Dystrophic calcification [Unknown]
  - Bacteraemia [Unknown]
  - Hepatomegaly [Unknown]
  - Major depression [Unknown]
  - Atelectasis [Unknown]
  - Arteriosclerosis [Unknown]
  - Aortic aneurysm [Unknown]
  - Musculoskeletal chest pain [Unknown]
